FAERS Safety Report 6637722-8 (Version None)
Quarter: 2010Q1

REPORT INFORMATION
  Report Type: 
  Country: None (occurrence: None)
  Receive Date: 20100315
  Receipt Date: 20100315
  Transmission Date: 20100710
  Serious: Yes (Other)
  Sender: FDA-Public Use
  Company Number: None

PATIENT
  Age: 27 Year
  Sex: Male
  Weight: 68.0396 kg

DRUGS (4)
  1. DOXAZOSIN MESYLATE [Suspect]
     Indication: DYSURIA
     Dosage: 1 DAY PO
     Route: 048
     Dates: start: 20100215, end: 20100216
  2. DOXAZOSIN MESYLATE [Suspect]
     Indication: PAINFUL ERECTION
     Dosage: 1 DAY PO
     Route: 048
     Dates: start: 20100215, end: 20100216
  3. DOXAZOSIN MESYLATE [Suspect]
     Indication: URINARY INCONTINENCE
     Dosage: 1 DAY PO
     Route: 048
     Dates: start: 20100215, end: 20100216
  4. DOXAZOSIN MESYLATE [Suspect]
     Indication: URINE FLOW DECREASED
     Dosage: 1 DAY PO
     Route: 048
     Dates: start: 20100215, end: 20100216

REACTIONS (2)
  - RASH PRURITIC [None]
  - SKIN DISORDER [None]
